FAERS Safety Report 6001345-4 (Version None)
Quarter: 2008Q4

REPORT INFORMATION
  Report Type: 
  Country: None (occurrence: None)
  Receive Date: 20081215
  Receipt Date: 20071109
  Transmission Date: 20090506
  Serious: No
  Sender: FDA-Public Use
  Company Number: US-AMGEN-KDL251197

PATIENT
  Sex: Female
  Weight: 68.1 kg

DRUGS (2)
  1. ENBREL [Suspect]
     Indication: PSORIATIC ARTHROPATHY
     Route: 058
     Dates: start: 20040421
  2. ENBREL [Suspect]
     Indication: PSORIASIS

REACTIONS (2)
  - BODY TEMPERATURE INCREASED [None]
  - CELLULITIS [None]
